FAERS Safety Report 9654243 (Version 1)
Quarter: 2013Q4

REPORT INFORMATION
  Report Type: Spontaneous
  Country: US (occurrence: US)
  Receive Date: 20131029
  Receipt Date: 20131029
  Transmission Date: 20140711
  Serious: No
  Sender: FDA-Public Use
  Company Number: US-BIOGENIDEC-2013BI084225

PATIENT
  Age: 61 Year
  Sex: Female

DRUGS (5)
  1. TECFIDERA [Suspect]
     Indication: MULTIPLE SCLEROSIS
     Route: 048
     Dates: start: 20130729
  2. ANASTROZOLE [Concomitant]
     Indication: PRODUCT USED FOR UNKNOWN INDICATION
  3. SPIRONOLACTONE [Concomitant]
     Indication: PRODUCT USED FOR UNKNOWN INDICATION
  4. TAMOXIFEN CITRATE [Concomitant]
     Indication: PRODUCT USED FOR UNKNOWN INDICATION
  5. ESTRADIOL [Concomitant]
     Indication: PRODUCT USED FOR UNKNOWN INDICATION

REACTIONS (4)
  - Flushing [Unknown]
  - Pruritus [Unknown]
  - Ocular hyperaemia [Unknown]
  - Eye swelling [Unknown]
